FAERS Safety Report 5828350-2 (Version None)
Quarter: 2008Q3

REPORT INFORMATION
  Report Type: 
  Country: None (occurrence: None)
  Receive Date: 20080729
  Receipt Date: 20080729
  Transmission Date: 20090109
  Serious: No
  Sender: FDA-Public Use
  Company Number: None

PATIENT
  Age: 61 Year
  Sex: Male
  Weight: 97.55 kg

DRUGS (1)
  1. IRON DEXTRAN [Suspect]
     Dosage: 975 MG IV
     Route: 042
     Dates: start: 20080515, end: 20080515

REACTIONS (1)
  - RASH [None]
